FAERS Safety Report 7517096-0 (Version None)
Quarter: 2011Q2

REPORT INFORMATION
  Report Type: 
  Country: None (occurrence: None)
  Receive Date: 20110526
  Receipt Date: 20110526
  Transmission Date: 20111010
  Serious: Yes (Hospitalization)
  Sender: FDA-Public Use
  Company Number: None

PATIENT
  Sex: Male

DRUGS (2)
  1. IPRATROPIUM BROMIDE AND ALBUTEROL SULFATE [Suspect]
     Indication: CHRONIC OBSTRUCTIVE PULMONARY DISEASE
     Dosage: 30 QD INHAL ONCE A DAY
     Route: 055
     Dates: start: 20110513, end: 20110520
  2. IPRATROPIUM BROMIDE AND ALBUTEROL SULFATE [Suspect]

REACTIONS (2)
  - DYSPNOEA [None]
  - DRUG EFFECT DECREASED [None]
